FAERS Safety Report 18115990 (Version 1)
Quarter: 2020Q3

REPORT INFORMATION
  Report Type: Spontaneous
  Country: US (occurrence: US)
  Receive Date: 20200805
  Receipt Date: 20200805
  Transmission Date: 20201103
  Serious: Yes (Hospitalization, Other)
  Sender: FDA-Public Use
  Company Number: US-BRISTOL-MYERS SQUIBB COMPANY-BMS-2020-061684

PATIENT
  Sex: Female
  Weight: 83.91 kg

DRUGS (1)
  1. OPDIVO [Suspect]
     Active Substance: NIVOLUMAB
     Indication: LUNG NEOPLASM MALIGNANT
     Dosage: 480 MILLIGRAM, Q4WK
     Route: 042
     Dates: start: 201806

REACTIONS (3)
  - Pneumonia [Unknown]
  - Oral pain [Unknown]
  - Ageusia [Unknown]

NARRATIVE: CASE EVENT DATE: 2019
